FAERS Safety Report 9079970 (Version 1)
Quarter: 2013Q1

REPORT INFORMATION
  Report Type: Spontaneous
  Country: US (occurrence: US)
  Receive Date: 20130130
  Receipt Date: 20130130
  Transmission Date: 20140127
  Serious: Yes (Hospitalization, Other)
  Sender: FDA-Public Use
  Company Number: US-009507513-1301USA003864

PATIENT
  Age: 74 Year
  Sex: Female

DRUGS (8)
  1. MONTELUKAST SODIUM [Suspect]
  2. ALENDRONATE SODIUM [Concomitant]
  3. ROSUVASTATIN CALCIUM [Concomitant]
  4. VITAMIN D (UNSPECIFIED) [Concomitant]
  5. CLOPIDOGREL [Concomitant]
  6. CETIRIZINE HYDROCHLORIDE [Concomitant]
  7. ASPIRIN [Suspect]
  8. ASPIRIN [Suspect]

REACTIONS (2)
  - Pancreatitis [Unknown]
  - Allergic respiratory disease [Unknown]
